FAERS Safety Report 24536782 (Version 3)
Quarter: 2025Q3

REPORT INFORMATION
  Report Type: Spontaneous
  Country: US (occurrence: US)
  Receive Date: 20241022
  Receipt Date: 20250718
  Transmission Date: 20251020
  Serious: No
  Sender: SANOFI AVENTIS
  Company Number: US-SA-2024SA295555

PATIENT
  Age: 58 Year
  Sex: Female

DRUGS (2)
  1. KEVZARA [Suspect]
     Active Substance: SARILUMAB
     Indication: Rheumatoid arthritis
     Dosage: 200 MG, QOW
     Route: 058
     Dates: start: 202410
  2. METHOTREXATE [Concomitant]
     Active Substance: METHOTREXATE

REACTIONS (4)
  - Pain [Unknown]
  - Joint swelling [Unknown]
  - Condition aggravated [Unknown]
  - Arthralgia [Unknown]

NARRATIVE: CASE EVENT DATE: 20241001
